FAERS Safety Report 6442111-5 (Version None)
Quarter: 2009Q4

REPORT INFORMATION
  Report Type: 
  Country: None (occurrence: None)
  Receive Date: 20091116
  Receipt Date: 20091102
  Transmission Date: 20100525
  Serious: Yes (Hospitalization, Other)
  Sender: FDA-Public Use
  Company Number: DE-PFIZER INC-2009259416

PATIENT
  Age: 84 Year
  Sex: Male
  Weight: 98 kg

DRUGS (6)
  1. ESTRACYT [Suspect]
     Indication: PROSTATE CANCER
     Dosage: 140 MG, 3X/DAY
     Dates: start: 20090810, end: 20090821
  2. ATACAND [Concomitant]
  3. EBRANTIL [Concomitant]
  4. ALLOPURINOL [Concomitant]
  5. DARIFENACIN [Concomitant]
  6. CONCOR COR [Concomitant]

REACTIONS (2)
  - HEPATITIS [None]
  - TRANSAMINASES INCREASED [None]
